FAERS Safety Report 7375502-9 (Version None)
Quarter: 2011Q1

REPORT INFORMATION
  Report Type: 
  Country: None (occurrence: None)
  Receive Date: 20110325
  Receipt Date: 20110314
  Transmission Date: 20110831
  Serious: Yes (Hospitalization, Other)
  Sender: FDA-Public Use
  Company Number: US-CEPHALON-2011001183

PATIENT
  Sex: Female
  Weight: 77 kg

DRUGS (3)
  1. NUVIGIL [Suspect]
     Route: 048
     Dates: start: 20110314
  2. PROVIGIL [Suspect]
     Indication: SOMNOLENCE
     Route: 048
     Dates: end: 20101201
  3. NUVIGIL [Suspect]
     Indication: SOMNOLENCE
     Route: 048
     Dates: start: 20101201, end: 20110314

REACTIONS (4)
  - UNEVALUABLE EVENT [None]
  - RASH [None]
  - SCAB [None]
  - DRUG PRESCRIBING ERROR [None]
